FAERS Safety Report 10431159 (Version 6)
Quarter: 2016Q3

REPORT INFORMATION
  Report Type: Spontaneous
  Country: US (occurrence: US)
  Receive Date: 20140904
  Receipt Date: 20160719
  Transmission Date: 20161109
  Serious: Yes (Life-Threatening, Hospitalization, Disabling, Other)
  Sender: FDA-Public Use
  Company Number: US-BAYER-2014-129517

PATIENT
  Age: 21 Year
  Sex: Female
  Weight: 97.51 kg

DRUGS (3)
  1. MIRENA [Suspect]
     Active Substance: LEVONORGESTREL
     Indication: CONTRACEPTION
     Dosage: 20 MCG/24HR, CONT
     Route: 015
     Dates: start: 20091228, end: 20121016
  2. MIRENA [Suspect]
     Active Substance: LEVONORGESTREL
     Indication: MENORRHAGIA
  3. IRON [IRON] [Concomitant]
     Active Substance: IRON

REACTIONS (19)
  - Pain [Not Recovered/Not Resolved]
  - Medical device discomfort [Not Recovered/Not Resolved]
  - Hypertension [None]
  - Device failure [None]
  - Post procedural haemorrhage [None]
  - Abdominal pain lower [Not Recovered/Not Resolved]
  - Fatigue [None]
  - Device difficult to use [None]
  - Device issue [None]
  - Scar [None]
  - Injury [Not Recovered/Not Resolved]
  - Complication of pregnancy [None]
  - Abnormal weight gain [None]
  - Alopecia [None]
  - Peripheral swelling [None]
  - Syncope [None]
  - Blood iron decreased [None]
  - Menstruation irregular [Not Recovered/Not Resolved]
  - Uterine perforation [Not Recovered/Not Resolved]

NARRATIVE: CASE EVENT DATE: 201102
